FAERS Safety Report 19331982 (Version 1)
Quarter: 2021Q2

REPORT INFORMATION
  Report Type: Other
  Country: JP (occurrence: JP)
  Receive Date: 20210529
  Receipt Date: 20210529
  Transmission Date: 20210717
  Serious: Yes (Hospitalization)
  Sender: FDA-Public Use
  Company Number: JP-ROCHE-2839013

PATIENT
  Age: 76 Year
  Sex: Male
  Weight: 63 kg

DRUGS (3)
  1. CARBOPLATIN. [Concomitant]
     Active Substance: CARBOPLATIN
     Indication: SMALL CELL LUNG CANCER
     Dosage: 495 MILLIGRAM
     Route: 041
     Dates: start: 20210126
  2. ATEZOLIZUMAB. [Suspect]
     Active Substance: ATEZOLIZUMAB
     Indication: SMALL CELL LUNG CANCER
     Route: 041
     Dates: start: 20210126, end: 20210514
  3. ETOPOSIDE. [Concomitant]
     Active Substance: ETOPOSIDE
     Indication: SMALL CELL LUNG CANCER
     Dosage: 168 MILLIGRAM
     Route: 041
     Dates: start: 20210126

REACTIONS (1)
  - Thrombophlebitis migrans [Not Recovered/Not Resolved]

NARRATIVE: CASE EVENT DATE: 20210520
